FAERS Safety Report 6096193-3 (Version None)
Quarter: 2009Q1

REPORT INFORMATION
  Report Type: 
  Country: None (occurrence: None)
  Receive Date: 20090227
  Receipt Date: 20080929
  Transmission Date: 20090719
  Serious: No
  Sender: FDA-Public Use
  Company Number: A0749621A

PATIENT
  Age: 40 Year
  Sex: Female

DRUGS (6)
  1. LAMICTAL [Suspect]
     Indication: BIPOLAR DISORDER
     Dosage: 50MG PER DAY
     Route: 048
     Dates: start: 20080901, end: 20080924
  2. SEROQUEL [Concomitant]
  3. CLONAZEPAM [Concomitant]
  4. LYRICA [Concomitant]
  5. METHYLPHENIDATE [Concomitant]
  6. TOPAMAX [Concomitant]

REACTIONS (2)
  - OEDEMA PERIPHERAL [None]
  - RASH [None]
